FAERS Safety Report 4814034-6 (Version None)
Quarter: 2005Q4

REPORT INFORMATION
  Report Type: 
  Country: None (occurrence: None)
  Receive Date: 20051028
  Receipt Date: 20050525
  Transmission Date: 20060501
  Serious: No
  Sender: FDA-Public Use
  Company Number: US-GLAXOSMITHKLINE-A0560128A

PATIENT
  Age: 67 Year
  Sex: Male

DRUGS (2)
  1. SEREVENT [Suspect]
     Route: 055
     Dates: end: 20050511
  2. ALBUTEROL [Concomitant]

REACTIONS (1)
  - DRUG INEFFECTIVE [None]
